FAERS Safety Report 6530479-0 (Version None)
Quarter: 2010Q1

REPORT INFORMATION
  Report Type: 
  Country: None (occurrence: None)
  Receive Date: 20100106
  Receipt Date: 20100106
  Transmission Date: 20100710
  Serious: Yes (Other)
  Sender: FDA-Public Use
  Company Number: None

PATIENT
  Age: 65 Year
  Sex: Female
  Weight: 56.8 kg

DRUGS (4)
  1. ALENDRONATE SODIUM [Suspect]
     Indication: OSTEOPOROSIS
     Dosage: 70MG WEEKLY ORAL
     Route: 048
     Dates: start: 20070101, end: 20091201
  2. CALCIUM CITRATE [Concomitant]
  3. VITAMIN D3 [Concomitant]
  4. ESTRADIOL [Concomitant]

REACTIONS (1)
  - PRODUCT SUBSTITUTION ISSUE [None]
